FAERS Safety Report 5769451-7 (Version None)
Quarter: 2008Q2

REPORT INFORMATION
  Report Type: 
  Country: None (occurrence: None)
  Receive Date: 20080612
  Receipt Date: 20080328
  Transmission Date: 20081010
  Serious: No
  Sender: FDA-Public Use
  Company Number: US-ABBOTT-08P-163-0444516-00

PATIENT
  Sex: Female

DRUGS (10)
  1. HUMIRA [Suspect]
     Indication: CROHN'S DISEASE
     Route: 058
     Dates: start: 20060101, end: 20080330
  2. BALSALAZIDE DISODIUM [Concomitant]
     Indication: CROHN'S DISEASE
  3. MESALAMINE [Concomitant]
     Indication: CROHN'S DISEASE
     Route: 054
  4. LIALDA [Concomitant]
     Indication: CROHN'S DISEASE
  5. MESALAMINE [Concomitant]
  6. ZYFLAMENT [Concomitant]
     Indication: PHYTOTHERAPY
     Route: 048
  7. CULTURAL PROBIOTIC [Concomitant]
     Indication: MEDICAL DIET
     Route: 048
  8. FISH OIL [Concomitant]
     Indication: DRUG USE FOR UNKNOWN INDICATION
     Route: 048
  9. ERGOCALCIFEROL [Concomitant]
     Indication: VITAMIN SUPPLEMENTATION
     Route: 048
  10. FOLIC ACID [Concomitant]
     Indication: DRUG USE FOR UNKNOWN INDICATION

REACTIONS (4)
  - ANAPHYLACTIC REACTION [None]
  - PRURITUS [None]
  - RASH [None]
  - RASH PAPULAR [None]
